FAERS Safety Report 6980477-8 (Version None)
Quarter: 2010Q3

REPORT INFORMATION
  Report Type: 
  Country: None (occurrence: None)
  Receive Date: 20100909
  Receipt Date: 20100825
  Transmission Date: 20110219
  Serious: Yes (Hospitalization)
  Sender: FDA-Public Use
  Company Number: 2010070022

PATIENT
  Age: 75 Year
  Sex: Female

DRUGS (3)
  1. TORSEMIDE [Suspect]
     Dosage: 5 MG, (5 MG, 1 IN 1 D), ORAL
     Route: 048
     Dates: start: 20100301, end: 20100609
  2. CELLIDRIN [Suspect]
     Indication: HYPERURICAEMIA
     Dosage: 150 MG (300 MG, 1 IN 2 D),ORAL
     Route: 048
     Dates: end: 20100609
  3. LISINOPRIL [Suspect]
     Dosage: 5 MG (5 MG, 1 IN 1 D), ORAL
     Route: 048
     Dates: end: 20100609

REACTIONS (5)
  - ALOPECIA [None]
  - BLOOD CREATININE INCREASED [None]
  - PRURITUS [None]
  - RASH MACULO-PAPULAR [None]
  - SKIN LESION [None]
